FAERS Safety Report 26133805 (Version 1)
Quarter: 2025Q4

REPORT INFORMATION
  Report Type: Spontaneous
  Country: EU (occurrence: EU)
  Receive Date: 20251209
  Receipt Date: 20251209
  Transmission Date: 20260117
  Serious: Yes (Disabling)
  Sender: SANOFI AVENTIS
  Company Number: None

PATIENT
  Age: 6 Year
  Sex: Male
  Weight: 20.2 kg

DRUGS (8)
  1. DUPIXENT [Suspect]
     Active Substance: DUPILUMAB
     Indication: Eczema
     Dosage: DAILY DOSAGE-NOT KNOWN.
     Route: 058
     Dates: start: 20250702
  2. BECLOMETHASONE [Concomitant]
     Active Substance: BECLOMETHASONE
     Indication: Asthma
     Dosage: 50.000UG
     Dates: start: 20230930
  3. NIZORAL [Concomitant]
     Active Substance: KETOCONAZOLE
     Indication: Eczema
     Dosage: DAILY DOSAGE-NOT KNOWN.
     Dates: start: 20220110
  4. ALBUTEROL [Concomitant]
     Active Substance: ALBUTEROL
     Indication: Asthma
     Dosage: 2 PUFFS AS NEEDED
     Dates: start: 20220201
  5. LEVOCETIRIZINE DIHYDROCHLORIDE [Concomitant]
     Active Substance: LEVOCETIRIZINE DIHYDROCHLORIDE
     Indication: Eczema
     Dosage: 2.5 ML, Q12H
     Dates: start: 20230302
  6. KETOFALL [Concomitant]
     Indication: Conjunctivitis allergic
     Dosage: 1 DROP BID.
     Route: 031
     Dates: start: 20250201
  7. ATROPINE [Concomitant]
     Active Substance: ATROPINE
     Indication: Conjunctivitis
     Dosage: 1 DROP PER WEEK.
     Dates: start: 20250401
  8. CYCLOSPORINE [Concomitant]
     Active Substance: CYCLOSPORINE
     Indication: Conjunctivitis
     Dosage: 1 DROP PER DAY
     Route: 031
     Dates: start: 20250202

REACTIONS (6)
  - Pain in extremity [Not Recovered/Not Resolved]
  - Crying [Not Recovered/Not Resolved]
  - Social avoidant behaviour [Not Recovered/Not Resolved]
  - Headache [Not Recovered/Not Resolved]
  - Conjunctivitis [Not Recovered/Not Resolved]
  - Arthralgia [Not Recovered/Not Resolved]

NARRATIVE: CASE EVENT DATE: 20250731
